FAERS Safety Report 8346397-1 (Version None)
Quarter: 2012Q2

REPORT INFORMATION
  Report Type: 
  Country: None (occurrence: None)
  Receive Date: 20120509
  Receipt Date: 20120504
  Transmission Date: 20120825
  Serious: Yes (Other)
  Sender: FDA-Public Use
  Company Number: SE-SANOFI-AVENTIS-2012SA031615

PATIENT
  Sex: Male

DRUGS (1)
  1. ALFUZOSIN HCL [Suspect]
     Indication: PROSTATIC DISORDER
     Route: 048

REACTIONS (1)
  - CATARACT [None]
